FAERS Safety Report 9436057 (Version 4)
Quarter: 2013Q3

REPORT INFORMATION
  Report Type: Spontaneous
  Country: IT (occurrence: IT)
  Receive Date: 20130801
  Receipt Date: 20130925
  Transmission Date: 20140515
  Serious: Yes (Hospitalization)
  Sender: FDA-Public Use
  Company Number: IT-ASTRAZENECA-2013SE57148

PATIENT
  Age: 17360 Day
  Sex: Female

DRUGS (9)
  1. SEROQUEL [Suspect]
     Indication: INTENTIONAL OVERDOSE
     Route: 048
  2. SEROQUEL [Suspect]
     Indication: INTENTIONAL OVERDOSE
     Route: 048
     Dates: start: 20130610, end: 20130610
  3. SEROQUEL [Suspect]
     Indication: INTENTIONAL OVERDOSE
     Route: 048
  4. FLURAZEPAM [Suspect]
     Indication: INTENTIONAL OVERDOSE
     Route: 048
  5. FLURAZEPAM [Suspect]
     Indication: INTENTIONAL OVERDOSE
     Route: 048
     Dates: start: 20130610, end: 20130610
  6. CYMBALTA [Suspect]
     Indication: PERSONALITY DISORDER
     Route: 048
     Dates: start: 20130509
  7. CYMBALTA [Suspect]
     Indication: PERSONALITY DISORDER
     Route: 048
     Dates: start: 20130610, end: 20130610
  8. CYMBALTA [Suspect]
     Indication: PERSONALITY DISORDER
     Dosage: XERISTAR 60 MG
  9. XENAZINA [Suspect]
     Route: 048
     Dates: start: 20130509, end: 20130610

REACTIONS (9)
  - Intentional overdose [Recovered/Resolved]
  - Drug abuse [Recovered/Resolved]
  - Balance disorder [Recovered/Resolved]
  - Bradyphrenia [Recovered/Resolved]
  - Sopor [Recovered/Resolved]
  - Urinary incontinence [Recovered/Resolved]
  - Hypotension [Recovered/Resolved]
  - Dysarthria [Recovered/Resolved]
  - Bradykinesia [Recovered/Resolved]
